FAERS Safety Report 5019270-4 (Version None)
Quarter: 2006Q2

REPORT INFORMATION
  Report Type: 
  Country: None (occurrence: None)
  Receive Date: 20060531
  Receipt Date: 20060518
  Transmission Date: 20061013
  Serious: No
  Sender: FDA-Public Use
  Company Number: DE-2006-001612

PATIENT
  Age: 48 Year
  Sex: Female
  Weight: 85 kg

DRUGS (1)
  1. ANGELIQ [Suspect]
     Indication: HORMONE REPLACEMENT THERAPY
     Dosage: 1 TAB(S), 1X/DAY, ORAL
     Route: 048
     Dates: start: 20050101

REACTIONS (4)
  - ENDOMETRIAL HYPERPLASIA [None]
  - METRORRHAGIA [None]
  - POSTMENOPAUSAL HAEMORRHAGE [None]
  - VAGINAL INFECTION [None]
